FAERS Safety Report 9456666 (Version 1)
Quarter: 2013Q3

REPORT INFORMATION
  Report Type: Spontaneous
  Country: US (occurrence: US)
  Receive Date: 20130813
  Receipt Date: 20130813
  Transmission Date: 20140515
  Serious: Yes (Other)
  Sender: FDA-Public Use
  Company Number: US-PFIZER INC-2013232522

PATIENT
  Sex: Female

DRUGS (2)
  1. LEVOXYL [Suspect]
     Indication: THYROID NEOPLASM
     Dosage: UNK
  2. LEVOTHYROXINE SODIUM [Suspect]
     Indication: THYROID NEOPLASM
     Dosage: UNK

REACTIONS (1)
  - Coeliac disease [Unknown]
